FAERS Safety Report 10478114 (Version 1)
Quarter: 2014Q3

REPORT INFORMATION
  Report Type: Spontaneous
  Country: IT (occurrence: IT)
  Receive Date: 20140926
  Receipt Date: 20140926
  Transmission Date: 20150326
  Serious: Yes (Hospitalization, Other)
  Sender: FDA-Public Use
  Company Number: IT-WATSON-2014-20467

PATIENT
  Age: 65 Year
  Sex: Female

DRUGS (1)
  1. ALENDRONATE SODIUM- (UNKNOWN) [Suspect]
     Active Substance: ALENDRONATE SODIUM
     Indication: PRODUCT USED FOR UNKNOWN INDICATION
     Dosage: UNK
     Route: 065
     Dates: start: 2004

REACTIONS (3)
  - Atypical femur fracture [Recovered/Resolved]
  - Lumbar spinal stenosis [Unknown]
  - Fracture nonunion [Recovered/Resolved]

NARRATIVE: CASE EVENT DATE: 2008
